FAERS Safety Report 22197143 (Version 4)
Quarter: 2024Q2

REPORT INFORMATION
  Report Type: Spontaneous
  Country: CA (occurrence: CA)
  Receive Date: 20230411
  Receipt Date: 20240620
  Transmission Date: 20240715
  Serious: Yes (Death, Hospitalization)
  Sender: FDA-Public Use
  Company Number: CA-ROCHE-3326198

PATIENT
  Age: 60 Year
  Sex: Female

DRUGS (5)
  1. RITUXIMAB [Suspect]
     Active Substance: RITUXIMAB
     Indication: Product used for unknown indication
     Route: 065
  2. SOLIRIS [Suspect]
     Active Substance: ECULIZUMAB
     Indication: Neuromyelitis optica spectrum disorder
     Dosage: SINGLE USE, 300 MG/30ML
     Route: 042
  3. SOLIRIS [Suspect]
     Active Substance: ECULIZUMAB
     Dosage: SINGLE USE, 300 MG/30ML
     Route: 042
  4. CALCIUM [Concomitant]
     Active Substance: CALCIUM
     Indication: Product used for unknown indication
     Dosage: NOT SPECIFIED
     Route: 065
  5. TYLENOL [Concomitant]
     Active Substance: ACETAMINOPHEN
     Indication: Product used for unknown indication
     Route: 065

REACTIONS (9)
  - Neuromyelitis optica spectrum disorder [Fatal]
  - Sepsis [Fatal]
  - Bacteraemia [Not Recovered/Not Resolved]
  - Endocarditis [Fatal]
  - Infection [Not Recovered/Not Resolved]
  - Nutritional condition abnormal [Fatal]
  - Bacterial sepsis [Fatal]
  - Brain oedema [Fatal]
  - Cardiac arrest [Fatal]
